FAERS Safety Report 12971077 (Version 3)
Quarter: 2018Q3

REPORT INFORMATION
  Report Type: Spontaneous
  Country: US (occurrence: US)
  Receive Date: 20161123
  Receipt Date: 20180706
  Transmission Date: 20181010
  Serious: No
  Sender: FDA-Public Use
  Company Number: US-JAZZ-2016-US-018875

PATIENT
  Sex: Male

DRUGS (33)
  1. MONTELUKAST [Concomitant]
     Active Substance: MONTELUKAST SODIUM
  2. XYREM [Suspect]
     Active Substance: SODIUM OXYBATE
     Indication: MYOCLONUS
     Dosage: 1 G, BID
     Route: 048
     Dates: start: 201311, end: 201311
  3. COMBIVENT [Concomitant]
     Active Substance: ALBUTEROL SULFATE\IPRATROPIUM BROMIDE
  4. XYREM [Suspect]
     Active Substance: SODIUM OXYBATE
     Dosage: 2 G, SECOND DOSE
     Route: 048
     Dates: start: 201411
  5. MOMETASONE FUROATE. [Concomitant]
     Active Substance: MOMETASONE FUROATE
  6. SPIRIVA [Concomitant]
     Active Substance: TIOTROPIUM BROMIDE MONOHYDRATE
  7. TAMSULOSIN HCL [Concomitant]
     Active Substance: TAMSULOSIN HYDROCHLORIDE
  8. POLYETHYLENE GLYCOL 3350. [Concomitant]
     Active Substance: POLYETHYLENE GLYCOL 3350
  9. ISOSOURCE HN [Concomitant]
     Active Substance: AMINO ACIDS\DEXTROSE\ELECTROLYTES NOS\SOYBEAN OIL\VITAMINS
  10. CETIRIZINE HCL [Concomitant]
     Active Substance: CETIRIZINE HYDROCHLORIDE
  11. XYREM [Suspect]
     Active Substance: SODIUM OXYBATE
     Dosage: 2 G, FIRST DOSE
     Route: 048
     Dates: start: 201411
  12. BISACODYL. [Concomitant]
     Active Substance: BISACODYL
  13. FLUNISOLIDE. [Concomitant]
     Active Substance: FLUNISOLIDE
  14. CLONAZEPAM. [Concomitant]
     Active Substance: CLONAZEPAM
  15. TRAZODONE [Concomitant]
     Active Substance: TRAZODONE HYDROCHLORIDE
  16. SODIUM CHLORIDE. [Concomitant]
     Active Substance: SODIUM CHLORIDE
  17. AMLODIPINE BESYLATE. [Concomitant]
     Active Substance: AMLODIPINE BESYLATE
  18. CITALOPRAM [Concomitant]
     Active Substance: CITALOPRAM HYDROBROMIDE
  19. VALPROIC ACID. [Concomitant]
     Active Substance: VALPROIC ACID
  20. SYMBICORT [Concomitant]
     Active Substance: BUDESONIDE\FORMOTEROL FUMARATE DIHYDRATE
  21. FAMOTIDINE. [Concomitant]
     Active Substance: FAMOTIDINE
  22. XYREM [Suspect]
     Active Substance: SODIUM OXYBATE
     Dosage: DOSE ADJUSTMENTS
     Route: 048
     Dates: start: 201311, end: 201411
  23. HYDROCORTISONE. [Concomitant]
     Active Substance: HYDROCORTISONE
  24. LEVETIRACETAM ER [Concomitant]
     Active Substance: LEVETIRACETAM
  25. OXITRIPTAN [Concomitant]
     Active Substance: OXITRIPTAN
  26. CARMELLOSE SODIUM [Concomitant]
     Active Substance: CARBOXYMETHYLCELLULOSE SODIUM
  27. FREEDOM CATH [Concomitant]
  28. IBUPROFEN. [Concomitant]
     Active Substance: IBUPROFEN
  29. XYREM [Suspect]
     Active Substance: SODIUM OXYBATE
     Dosage: 1.5 G, THIRD DOSE
     Route: 048
     Dates: start: 201411
  30. ALBUTEROL SULFATE HFA [Concomitant]
     Active Substance: ALBUTEROL SULFATE
  31. VITAMIN D3 [Concomitant]
     Active Substance: CHOLECALCIFEROL
  32. SIMVASTATIN. [Concomitant]
     Active Substance: SIMVASTATIN
  33. DOCUSATE SODIUM. [Concomitant]
     Active Substance: DOCUSATE SODIUM

REACTIONS (10)
  - Hypertension [Recovering/Resolving]
  - Blood sodium decreased [Unknown]
  - Cortisol decreased [Unknown]
  - Aphasia [Not Recovered/Not Resolved]
  - Asthma [Recovering/Resolving]
  - Upper-airway cough syndrome [Not Recovered/Not Resolved]
  - Sleep disorder [Unknown]
  - Depression [Recovering/Resolving]
  - Anxiety [Recovering/Resolving]
  - Hypersensitivity [Not Recovered/Not Resolved]
